FAERS Safety Report 12978475 (Version 1)
Quarter: 2016Q4

REPORT INFORMATION
  Report Type: Spontaneous
  Country: US (occurrence: US)
  Receive Date: 20161128
  Receipt Date: 20161128
  Transmission Date: 20170207
  Serious: Yes (Death, Hospitalization)
  Sender: FDA-Public Use
  Company Number: None

PATIENT
  Age: 93 Year
  Sex: Male
  Weight: 63.5 kg

DRUGS (5)
  1. HALOPERIDOL. [Suspect]
     Active Substance: HALOPERIDOL
     Indication: AGITATION
     Dates: start: 20160825, end: 20160830
  2. SEROQUEL [Suspect]
     Active Substance: QUETIAPINE FUMARATE
     Indication: AGITATION
     Dates: start: 20160825, end: 20160830
  3. SYNTHROID [Concomitant]
     Active Substance: LEVOTHYROXINE SODIUM
  4. ARICEPT [Concomitant]
     Active Substance: DONEPEZIL HYDROCHLORIDE
  5. AVODART [Concomitant]
     Active Substance: DUTASTERIDE

REACTIONS (2)
  - Dyskinesia [None]
  - Apallic syndrome [None]

NARRATIVE: CASE EVENT DATE: 20160901
